FAERS Safety Report 5116850-2 (Version None)
Quarter: 2006Q3

REPORT INFORMATION
  Report Type: 
  Country: None (occurrence: None)
  Receive Date: 20060928
  Receipt Date: 20060703
  Transmission Date: 20061208
  Serious: Yes (Death, Hospitalization)
  Sender: FDA-Public Use
  Company Number: AT-PURDUE-DEU_2006_0002311

PATIENT
  Age: 20 Year
  Sex: Male

DRUGS (1)
  1. SUBSTITOL RETARD KAPSELN [Suspect]
     Indication: DRUG ABUSER
     Route: 042

REACTIONS (3)
  - DRUG ABUSER [None]
  - INCORRECT ROUTE OF DRUG ADMINISTRATION [None]
  - MALAISE [None]
